FAERS Safety Report 4674414-9 (Version None)
Quarter: 2005Q2

REPORT INFORMATION
  Report Type: 
  Country: None (occurrence: None)
  Receive Date: 20050526
  Receipt Date: 20040517
  Transmission Date: 20051028
  Serious: Yes (Other)
  Sender: FDA-Public Use
  Company Number: PHEH2004US05492

PATIENT
  Age: 55 Year
  Sex: Female

DRUGS (9)
  1. RADIATION THERAPY [Concomitant]
     Indication: METASTASES TO BONE
     Dosage: 3750 GY 15 FX TO SACRUM
     Dates: start: 20020826, end: 20020916
  2. RADIATION THERAPY [Concomitant]
     Dosage: 16 GY 1 FX TO SACRUM
     Dates: start: 20030807, end: 20030807
  3. RADIATION THERAPY [Concomitant]
     Dosage: 16 GY 1 FX TO SACRUM
     Dates: start: 20031118, end: 20031118
  4. ADRIAMYCIN PFS [Concomitant]
     Indication: BREAST CANCER
     Dosage: 109 MG 1 DOSE Q 3 WEEKS
     Route: 042
     Dates: start: 20020503, end: 20020705
  5. CYTOXAN [Concomitant]
     Indication: BREAST CANCER
     Dosage: 1092 MG 1 DOSE Q 3 WEEKS
     Route: 042
  6. DECADRON [Concomitant]
     Indication: PROPHYLAXIS
     Dosage: 12 MG 1 DOSE Q 3 WEEKS
  7. TAMOXIFEN [Concomitant]
     Indication: BREAST CANCER
     Dosage: 10 MG, BID
     Dates: start: 20020726, end: 20030508
  8. FEMARA [Concomitant]
     Indication: BREAST CANCER
     Dosage: 2.5 G, QD
     Route: 048
     Dates: start: 20030808
  9. ZOMETA [Suspect]
     Indication: METASTASES TO BONE
     Dosage: 4 MG MONTHLY
     Dates: start: 20020828, end: 20040114

REACTIONS (4)
  - BONE DISORDER [None]
  - OSTEONECROSIS [None]
  - OSTEOSCLEROSIS [None]
  - TOOTH EXTRACTION [None]
